FAERS Safety Report 10141407 (Version 6)
Quarter: 2014Q2

REPORT INFORMATION
  Report Type: Report from Study
  Country: FR (occurrence: FR)
  Receive Date: 20140429
  Receipt Date: 20140528
  Transmission Date: 20141212
  Serious: Yes (Death)
  Sender: FDA-Public Use
  Company Number: PHHO2014FR006148

PATIENT
  Sex: 0

DRUGS (3)
  1. BKM120 [Suspect]
     Indication: HEAD AND NECK CANCER METASTATIC
     Dosage: 100 MG, QD (PER DAY)
     Route: 048
     Dates: start: 20140312
  2. PARACETAMOL [Suspect]
     Indication: MUSCULOSKELETAL PAIN
     Dosage: 3 G, QD
     Dates: start: 20140408
  3. PARACETAMOL [Suspect]
     Indication: METASTASES TO BONE

REACTIONS (1)
  - Death [Fatal]
